FAERS Safety Report 17758186 (Version 1)
Quarter: 2020Q2

REPORT INFORMATION
  Report Type: Spontaneous
  Country: MX (occurrence: MX)
  Receive Date: 20200507
  Receipt Date: 20200507
  Transmission Date: 20200714
  Serious: Yes (Death)
  Sender: FDA-Public Use
  Company Number: MX-MALLINCKRODT-T202001697

PATIENT
  Age: 70 Year
  Sex: Male
  Weight: 96 kg

DRUGS (4)
  1. TEDIZOLID [Concomitant]
     Active Substance: TEDIZOLID
     Indication: ANTIBIOTIC THERAPY
     Dosage: 200 MICROGRAM, QD
     Route: 042
     Dates: start: 20200407
  2. INOMAX [Suspect]
     Active Substance: NITRIC OXIDE
     Indication: CORONAVIRUS INFECTION
  3. INOMAX [Suspect]
     Active Substance: NITRIC OXIDE
     Indication: HYPOXIA
     Dosage: 30PPM, INHALATION
     Route: 055
     Dates: start: 20200408, end: 20200409
  4. MEROPENEM. [Concomitant]
     Active Substance: MEROPENEM
     Indication: ANTIBIOTIC THERAPY
     Dosage: 1 GRAM, Q8H
     Route: 042
     Dates: start: 20200407

REACTIONS (4)
  - Product use in unapproved indication [Unknown]
  - Product use issue [Unknown]
  - Myocardial infarction [Fatal]
  - Respiratory failure [Fatal]

NARRATIVE: CASE EVENT DATE: 202004
